FAERS Safety Report 5258907-1 (Version None)
Quarter: 2007Q1

REPORT INFORMATION
  Report Type: 
  Country: None (occurrence: None)
  Receive Date: 20070308
  Receipt Date: 20070228
  Transmission Date: 20070707
  Serious: Yes (Other)
  Sender: FDA-Public Use
  Company Number: AU-GLAXOSMITHKLINE-B0456698A

PATIENT
  Sex: Male

DRUGS (1)
  1. PANADOL RAPID [Suspect]
     Indication: HEADACHE
     Route: 065
     Dates: start: 20060101

REACTIONS (3)
  - ANAPHYLACTIC REACTION [None]
  - CHEST PAIN [None]
  - GASTRIC ULCER [None]
